FAERS Safety Report 19052849 (Version 1)
Quarter: 2021Q1

REPORT INFORMATION
  Report Type: Spontaneous
  Country: US (occurrence: US)
  Receive Date: 20210324
  Receipt Date: 20210324
  Transmission Date: 20210420
  Serious: Yes (Other)
  Sender: FDA-Public Use
  Company Number: US-TARO-2020TAR00419

PATIENT

DRUGS (1)
  1. LAMOTRIGINE. [Suspect]
     Active Substance: LAMOTRIGINE
     Indication: PRODUCT USED FOR UNKNOWN INDICATION
     Route: 065

REACTIONS (6)
  - Exposure during pregnancy [Unknown]
  - Amnesia [Unknown]
  - Dizziness [Unknown]
  - Abortion spontaneous [Unknown]
  - Loss of consciousness [Unknown]
  - Nausea [Unknown]
